FAERS Safety Report 20907927 (Version 4)
Quarter: 2022Q2

REPORT INFORMATION
  Report Type: Spontaneous
  Country: IT (occurrence: IT)
  Receive Date: 20220602
  Receipt Date: 20220617
  Transmission Date: 20220721
  Serious: Yes (Death)
  Sender: FDA-Public Use
  Company Number: None

PATIENT
  Age: 68 Year
  Sex: Female

DRUGS (3)
  1. GLECAPREVIR\PIBRENTASVIR [Suspect]
     Active Substance: GLECAPREVIR\PIBRENTASVIR
     Indication: Hepatic cirrhosis
     Route: 048
     Dates: start: 20220309, end: 20220318
  2. LASIX [Concomitant]
     Active Substance: FUROSEMIDE
     Indication: Ascites
     Dosage: COMPRESSE
     Route: 048
  3. LUVION [Concomitant]
     Indication: Hepatic cirrhosis
     Dosage: CAPSULE RIGIDE
     Route: 048

REACTIONS (3)
  - Pruritus [Fatal]
  - Capillary fragility [Fatal]
  - Thrombocytopenia [Fatal]

NARRATIVE: CASE EVENT DATE: 20220318
